FAERS Safety Report 18318082 (Version 1)
Quarter: 2020Q3

REPORT INFORMATION
  Report Type: Spontaneous
  Country: US (occurrence: US)
  Receive Date: 20200928
  Receipt Date: 20200928
  Transmission Date: 20201103
  Serious: No
  Sender: FDA-Public Use
  Company Number: US-PFIZER INC-2020368787

PATIENT
  Sex: Male

DRUGS (1)
  1. R?GENE [Suspect]
     Active Substance: ARGININE HYDROCHLORIDE
     Dosage: UNK

REACTIONS (1)
  - Skin plaque [Unknown]
